FAERS Safety Report 8915905 (Version 2)
Quarter: 2012Q4

REPORT INFORMATION
  Report Type: 
  Country: US (occurrence: US)
  Receive Date: 20121119
  Receipt Date: 20121228
  Transmission Date: 20130627
  Serious: No
  Sender: FDA-Public Use
  Company Number: US-PFIZER INC-2012288435

PATIENT
  Age: 49 Year
  Sex: Female
  Weight: 75 kg

DRUGS (3)
  1. LYRICA [Suspect]
     Indication: BACK DISORDER
     Dosage: 300 mg, 2x/day
     Route: 048
  2. LYRICA [Suspect]
     Indication: FIBROMYALGIA
  3. ALBUTEROL [Concomitant]
     Indication: BRONCHITIS
     Dosage: UNK
     Route: 055

REACTIONS (2)
  - Viral upper respiratory tract infection [Recovering/Resolving]
  - Malaise [Recovering/Resolving]
